FAERS Safety Report 6555613-8 (Version None)
Quarter: 2010Q1

REPORT INFORMATION
  Report Type: 
  Country: None (occurrence: None)
  Receive Date: 20100128
  Receipt Date: 20100118
  Transmission Date: 20100710
  Serious: Yes (Other)
  Sender: FDA-Public Use
  Company Number: FR-JNJFOC-20100108644

PATIENT
  Age: 44 Year
  Sex: Male

DRUGS (4)
  1. REMICADE [Suspect]
     Indication: COLITIS ULCERATIVE
     Route: 042
     Dates: start: 20080801
  2. IMUREL [Concomitant]
     Indication: COLITIS ULCERATIVE
  3. PENTASA [Concomitant]
     Indication: COLITIS ULCERATIVE
  4. PREVISCAN (FLUINDIONE) [Concomitant]
     Indication: EMBOLISM

REACTIONS (1)
  - SKIN HYPERPIGMENTATION [None]
